FAERS Safety Report 22340977 (Version 2)
Quarter: 2023Q2

REPORT INFORMATION
  Report Type: Spontaneous
  Country: US (occurrence: US)
  Receive Date: 20230518
  Receipt Date: 20230601
  Transmission Date: 20230721
  Serious: Yes (Hospitalization)
  Sender: FDA-Public Use
  Company Number: US-TEVA-2023-US-2886713

PATIENT
  Age: 28 Year
  Sex: Female

DRUGS (18)
  1. EPOPROSTENOL [Suspect]
     Active Substance: EPOPROSTENOL
     Indication: Portopulmonary hypertension
     Dosage: AT 15 MONTHS PRETRANSPLANT; TITRATED UP TO 10-12 NG/KG/MIN
     Route: 042
  2. EPOPROSTENOL [Suspect]
     Active Substance: EPOPROSTENOL
     Indication: Right ventricular dysfunction
     Dosage: AT 14 MONTHS PRETRANSPLANT; 11 NG/KG/MIN
     Route: 042
  3. EPOPROSTENOL [Suspect]
     Active Substance: EPOPROSTENOL
     Dosage: AT 12 MONTHS PRETRANSPLANT; 12 NG/KG/MIN
     Route: 042
  4. EPOPROSTENOL [Suspect]
     Active Substance: EPOPROSTENOL
     Dosage: INTRAOPERATIVELY; 6-24 NG/KG/MIN
     Route: 042
  5. NITRIC OXIDE [Suspect]
     Active Substance: NITRIC OXIDE
     Indication: Portopulmonary hypertension
     Dosage: 10-60 PPM
     Route: 045
  6. NITRIC OXIDE [Suspect]
     Active Substance: NITRIC OXIDE
     Indication: Right ventricular dysfunction
  7. HEPARIN [Suspect]
     Active Substance: HEPARIN SODIUM
     Indication: Thrombosis prophylaxis
     Dosage: 1000 UNITS/H ADMINISTERED UPTO REPERFUSION OF GRAFT
     Route: 041
  8. HEPARIN [Suspect]
     Active Substance: HEPARIN SODIUM
     Dosage: ADDITIONAL DOSE AT ONSET OF STAGE II , 2000 IU
     Route: 041
  9. SILDENAFIL [Concomitant]
     Active Substance: SILDENAFIL
     Indication: Portopulmonary hypertension
     Dosage: 90 MILLIGRAM DAILY; 30MG, 3 TIMES A DAY; AT 20 MONTHS PRETRANSPLANT, CONCOMITANT TO MACITENTAN
     Route: 048
  10. SILDENAFIL [Concomitant]
     Active Substance: SILDENAFIL
     Indication: Right ventricular dysfunction
     Dosage: 10MG X 2 ; INTRAOPERATIVELY CONCOMITANT TO NITRIC OXIDE AND EPOPROSTENOL
     Route: 042
  11. TREPROSTINIL [Concomitant]
     Active Substance: TREPROSTINIL
     Indication: Portopulmonary hypertension
     Dosage: AT 20 MONTHS PRETRANSPLANT, CONCOMITANT TO MACITENTAN
     Route: 045
  12. MILRINONE [Concomitant]
     Active Substance: MILRINONE
     Indication: Right ventricular dysfunction
     Dosage: 0.25-0.5 MCG/KG/MIN; INTRAOPERATIVELY WITH EPOPROSTENOL, NITRIC OXIDE
     Route: 065
  13. EPINEPHRINE [Concomitant]
     Active Substance: EPINEPHRINE
     Indication: Mean arterial pressure increased
     Dosage: 0.01-0.04 MCG/KG/MIN
     Route: 065
  14. NOREPINEPHRINE [Concomitant]
     Active Substance: NOREPINEPHRINE
     Indication: Mean arterial pressure increased
     Dosage: 0.04-0.06 MCG/KG/MIN
     Route: 065
  15. VASOPRESSIN [Concomitant]
     Active Substance: VASOPRESSIN
     Indication: Mean arterial pressure increased
     Dosage: 0.04-0.12 UNITS
     Route: 065
  16. ESMOLOL [Concomitant]
     Active Substance: ESMOLOL HYDROCHLORIDE
     Indication: Sinus tachycardia
     Dosage: 0.4-1.1 MCG/KG/MIN
     Route: 042
  17. Epsilon-aminocaproic acid [Concomitant]
     Indication: Procoagulant therapy
     Dosage: INITIATED JUST PRIOR TO REPERFUSION
     Route: 042
  18. METHYLPREDNISOLONE [Concomitant]
     Active Substance: METHYLPREDNISOLONE
     Indication: Immunosuppressant drug therapy
     Dosage: INTRAOPERATIVE , 500 MG
     Route: 042

REACTIONS (2)
  - Coagulopathy [Unknown]
  - Procedural complication [Unknown]
